FAERS Safety Report 8582245-2 (Version None)
Quarter: 2012Q3

REPORT INFORMATION
  Report Type: 
  Country: None (occurrence: None)
  Receive Date: 20120809
  Receipt Date: 20120806
  Transmission Date: 20120928
  Serious: No
  Sender: FDA-Public Use
  Company Number: US-PFIZER INC-2012147272

PATIENT
  Age: 60 Year
  Sex: Female

DRUGS (7)
  1. BUTAZOLIDIN ALKA [Suspect]
     Dosage: UNK
  2. TOFRANIL [Suspect]
     Dosage: UNK
  3. PSEUDOEPHEDRINE [Suspect]
     Dosage: UNK
  4. LIMBITROL [Suspect]
     Dosage: UNK
  5. CODEINE SULFATE [Suspect]
     Dosage: UNK
  6. MORPHINE SULFATE [Suspect]
     Dosage: UNK
  7. STADOL [Suspect]
     Dosage: UNK

REACTIONS (1)
  - NO ADVERSE EVENT [None]
